FAERS Safety Report 9300565 (Version 1)
Quarter: 2013Q2

REPORT INFORMATION
  Report Type: Spontaneous
  Country: DE (occurrence: DE)
  Receive Date: 20130521
  Receipt Date: 20130521
  Transmission Date: 20140414
  Serious: Yes (Other)
  Sender: FDA-Public Use
  Company Number: DE-ROXANE LABORATORIES, INC.-2013-RO-00803RO

PATIENT
  Age: 72 Year
  Sex: Male
  Weight: 68 kg

DRUGS (6)
  1. ONDANSETRON [Suspect]
     Indication: NAUSEA
  2. ONDANSETRON [Suspect]
     Indication: VOMITING
  3. MIRTAZAPINE [Suspect]
     Indication: DEPRESSION
     Dosage: 45 MG
  4. VENLAFAXINE [Suspect]
     Indication: DEPRESSION
     Dosage: 75 MG
  5. ETOMIDATE [Suspect]
     Indication: ANAESTHESIA
  6. SUXAMETHONIUMCHLORIDE [Suspect]
     Indication: MUSCLE RELAXANT THERAPY

REACTIONS (1)
  - Inhibitory drug interaction [Unknown]
